FAERS Safety Report 5504171-5 (Version None)
Quarter: 2007Q4

REPORT INFORMATION
  Report Type: 
  Country: None (occurrence: None)
  Receive Date: 20071101
  Receipt Date: 20071026
  Transmission Date: 20080405
  Serious: Yes (Other)
  Sender: FDA-Public Use
  Company Number: A0691102A

PATIENT
  Age: 11 Year
  Sex: Male
  Weight: 60 kg

DRUGS (3)
  1. VENTOLIN [Suspect]
     Indication: ASTHMA
     Route: 055
  2. SINGULAIR [Concomitant]
     Route: 048
  3. SYMBICORT [Concomitant]

REACTIONS (4)
  - ASTHMA [None]
  - HEART RATE INCREASED [None]
  - PALPITATIONS [None]
  - PARAESTHESIA [None]
